FAERS Safety Report 15463197 (Version 2)
Quarter: 2019Q4

REPORT INFORMATION
  Report Type: Spontaneous
  Country: US (occurrence: US)
  Receive Date: 20181004
  Receipt Date: 20191002
  Transmission Date: 20200122
  Serious: Yes (Other)
  Sender: FDA-Public Use
  Company Number: US-ROCHE-2193127

PATIENT
  Age: 48 Year
  Sex: Female

DRUGS (9)
  1. CRISABOROLE [Concomitant]
     Active Substance: CRISABOROLE
     Route: 061
  2. SODIUM CHLORIDE 0.9% [Concomitant]
     Active Substance: SODIUM CHLORIDE
     Dosage: INJECT 300 MG INTO THE VEIN. GOES WITH OCREVUS
     Route: 042
  3. CALCIUM CARBONATE/VITAMIN D3 [Concomitant]
     Active Substance: CALCIUM CARBONATE\CHOLECALCIFEROL
     Dosage: 2000 UNITS
     Route: 048
  4. OCREVUS [Suspect]
     Active Substance: OCRELIZUMAB
     Indication: MULTIPLE SCLEROSIS
     Route: 042
     Dates: start: 201708
  5. GLUCOSAMINE SULFATE [Concomitant]
     Active Substance: GLUCOSAMINE SULFATE
     Route: 048
  6. OMEPRAZOLE. [Concomitant]
     Active Substance: OMEPRAZOLE
     Route: 048
  7. OXYBUTYNIN. [Concomitant]
     Active Substance: OXYBUTYNIN CHLORIDE
     Route: 048
  8. OCREVUS [Suspect]
     Active Substance: OCRELIZUMAB
     Route: 042
     Dates: start: 201808
  9. MUPIROCIN CALCIUM. [Concomitant]
     Active Substance: MUPIROCIN CALCIUM
     Dosage: APPLY TOPICALLY TO AFFECTED AREA 2 TIMES DAILY
     Route: 061

REACTIONS (1)
  - Invasive ductal breast carcinoma [Unknown]

NARRATIVE: CASE EVENT DATE: 201809
